FAERS Safety Report 8835400 (Version 1)
Quarter: 2012Q4

REPORT INFORMATION
  Report Type: 
  Country: US (occurrence: US)
  Receive Date: 20121011
  Receipt Date: 20121011
  Transmission Date: 20130627
  Serious: No
  Sender: FDA-Public Use
  Company Number: US-PFIZER INC-2012252431

PATIENT
  Sex: Female

DRUGS (3)
  1. ROBITUSSIN DM [Suspect]
     Indication: NASOPHARYNGITIS
     Dosage: UNK, every 4 hrs
     Dates: start: 2012
  2. AZITHROMYCIN [Suspect]
     Indication: NASOPHARYNGITIS
     Dosage: UNK
     Dates: start: 2012, end: 2012
  3. MUCINEX [Suspect]
     Indication: NASOPHARYNGITIS
     Dosage: UNK
     Dates: start: 2012, end: 2012

REACTIONS (3)
  - Drug effect incomplete [Unknown]
  - Chest discomfort [Unknown]
  - Cough [Unknown]
